FAERS Safety Report 17139680 (Version 3)
Quarter: 2020Q1

REPORT INFORMATION
  Report Type: Spontaneous
  Country: IN (occurrence: IN)
  Receive Date: 20191211
  Receipt Date: 20200201
  Transmission Date: 20200409
  Serious: Yes (Hospitalization)
  Sender: FDA-Public Use
  Company Number: IN-GLENMARK PHARMACEUTICALS-2019GMK044689

PATIENT

DRUGS (1)
  1. TELMA [Suspect]
     Active Substance: TELMISARTAN
     Indication: BLOOD PRESSURE ABNORMAL
     Dosage: 1 DF, QD (1 TABLET DAILY)
     Route: 048

REACTIONS (2)
  - Blood pressure inadequately controlled [Recovering/Resolving]
  - Drug ineffective [Unknown]

NARRATIVE: CASE EVENT DATE: 20191128
